FAERS Safety Report 19958503 (Version 1)
Quarter: 2021Q4

REPORT INFORMATION
  Report Type: Spontaneous
  Country: US (occurrence: JM)
  Receive Date: 20211015
  Receipt Date: 20211015
  Transmission Date: 20220303
  Serious: Yes (Hospitalization)
  Sender: FDA-Public Use
  Company Number: US-PERRIGO-21JM029127

PATIENT
  Age: 37 Year
  Sex: Male

DRUGS (1)
  1. HYDROMORPHONE HYDROCHLORIDE [Suspect]
     Active Substance: HYDROMORPHONE HYDROCHLORIDE
     Indication: Product used for unknown indication
     Dosage: UNK, UNK
     Route: 042

REACTIONS (3)
  - Arterial insufficiency [Recovered/Resolved with Sequelae]
  - Foreign body embolism [Recovered/Resolved with Sequelae]
  - Incorrect route of product administration [Recovered/Resolved with Sequelae]
